FAERS Safety Report 20040612 (Version 1)
Quarter: 2021Q4

REPORT INFORMATION
  Report Type: Spontaneous
  Country: US (occurrence: None)
  Receive Date: 20211108
  Receipt Date: 20211108
  Transmission Date: 20220303
  Serious: No
  Sender: FDA-Public Use
  Company Number: None

PATIENT
  Age: 59 Year
  Sex: Female

DRUGS (1)
  1. AJOVY [Suspect]
     Active Substance: FREMANEZUMAB-VFRM
     Indication: Migraine prophylaxis
     Dosage: FREQUENCY : MONTHLY;?
     Route: 058
     Dates: start: 20210721

REACTIONS (3)
  - Headache [None]
  - Needle issue [None]
  - Therapy interrupted [None]

NARRATIVE: CASE EVENT DATE: 20211028
